FAERS Safety Report 24324718 (Version 3)
Quarter: 2024Q4

REPORT INFORMATION
  Report Type: Spontaneous
  Country: US (occurrence: US)
  Receive Date: 20240916
  Receipt Date: 20241210
  Transmission Date: 20250114
  Serious: Yes (Other)
  Sender: BRISTOL-MYERS SQUIBB COMPANY
  Company Number: US-BRISTOL-MYERS SQUIBB COMPANY-2024-146799

PATIENT
  Age: 71 Year
  Sex: Male
  Weight: 74.84 kg

DRUGS (2)
  1. REVLIMID [Suspect]
     Active Substance: LENALIDOMIDE
     Indication: Plasma cell myeloma
     Dosage: ONCE DAILY FOR 21 DAYS ON THEN 7 DAYS OFF
     Route: 048
  2. REVLIMID [Suspect]
     Active Substance: LENALIDOMIDE
     Dosage: FREQUENCY: 1 CAPSULE DAILY FOR 21 DAYS, THEN 7 DAYS OFF
     Route: 048
     Dates: start: 202409

REACTIONS (4)
  - Cardiac disorder [Recovered/Resolved]
  - Anaemia [Recovered/Resolved]
  - Dry skin [Unknown]
  - Epistaxis [Recovering/Resolving]

NARRATIVE: CASE EVENT DATE: 20231201
